FAERS Safety Report 5672999-7 (Version None)
Quarter: 2008Q1

REPORT INFORMATION
  Report Type: 
  Country: None (occurrence: None)
  Receive Date: 20080319
  Receipt Date: 20080215
  Transmission Date: 20080703
  Serious: No
  Sender: FDA-Public Use
  Company Number: US-ASTRAZENECA-2008UW03080

PATIENT
  Age: 9 Year

DRUGS (1)
  1. SYMBICORT [Suspect]
     Dosage: 2 X (80/4.5 UG)
     Route: 055

REACTIONS (2)
  - PARAESTHESIA [None]
  - URTICARIA [None]
